FAERS Safety Report 8008711 (Version 5)
Quarter: 2013Q1

REPORT INFORMATION
  Report Type: Report from Study
  Country: IE (occurrence: IE)
  Receive Date: 20110624
  Receipt Date: 20130215
  Transmission Date: 20140127
  Serious: Yes (Hospitalization, Other)
  Sender: FDA-Public Use
  Company Number: IE-JNJFOC-20110606677

PATIENT
  Age: 73 Year
  Sex: Male
  Weight: 91.7 kg

DRUGS (14)
  1. ABIRATERONE ACETATE [Suspect]
     Route: 048
  2. ABIRATERONE ACETATE [Suspect]
     Indication: PROSTATE CANCER METASTATIC
     Route: 048
     Dates: start: 20110314, end: 20110522
  3. TINZAPARIN [Concomitant]
     Indication: PULMONARY EMBOLISM
     Route: 058
     Dates: start: 201102
  4. TINZAPARIN [Concomitant]
     Indication: DEEP VEIN THROMBOSIS
     Route: 058
     Dates: start: 201102
  5. ATORVASTATIN [Concomitant]
     Indication: BLOOD CHOLESTEROL INCREASED
     Route: 048
     Dates: end: 20110601
  6. LACTULOSE [Concomitant]
     Indication: CONSTIPATION
     Route: 048
     Dates: end: 20110602
  7. SENNA [Concomitant]
     Indication: CONSTIPATION
     Route: 048
     Dates: end: 20110606
  8. LANSOPRAZOLE [Concomitant]
     Indication: PROPHYLAXIS AGAINST GASTROINTESTINAL ULCER
     Route: 048
  9. SEVREDOL [Concomitant]
     Indication: PAIN
     Route: 048
  10. SEVREDOL [Concomitant]
     Indication: PAIN
     Route: 048
  11. MST [Concomitant]
     Indication: PAIN
     Route: 048
  12. MST [Concomitant]
     Indication: PAIN
     Route: 048
  13. PARACETAMOL [Concomitant]
     Indication: PAIN
     Route: 048
  14. PREDNISOLONE [Concomitant]
     Indication: PROSTATE CANCER METASTATIC
     Route: 048
     Dates: start: 20110314, end: 20110522

REACTIONS (3)
  - Prostatic specific antigen increased [Not Recovered/Not Resolved]
  - Spinal cord compression [Recovered/Resolved with Sequelae]
  - Spinal fracture [Not Recovered/Not Resolved]
